FAERS Safety Report 4504403-6 (Version None)
Quarter: 2004Q4

REPORT INFORMATION
  Report Type: 
  Country: None (occurrence: None)
  Receive Date: 20041117
  Receipt Date: 20041117
  Transmission Date: 20050328
  Serious: Yes (Hospitalization)
  Sender: FDA-Public Use
  Company Number: None

PATIENT
  Age: 70 Year
  Sex: Male

DRUGS (6)
  1. LISINOPRIL [Suspect]
     Indication: HYPERTENSION
     Dosage: 40 MG QD
     Dates: start: 20000301
  2. BACTRIM DS [Concomitant]
  3. GEMFIBROZIL [Concomitant]
  4. GLYBURIDE [Concomitant]
  5. LORATADINE [Concomitant]
  6. ROSIGLITAZONE MALEATE [Concomitant]

REACTIONS (1)
  - HYPERKALAEMIA [None]
